FAERS Safety Report 7008316-X (Version None)
Quarter: 2010Q3

REPORT INFORMATION
  Report Type: 
  Country: None (occurrence: None)
  Receive Date: 20100922
  Receipt Date: 20100915
  Transmission Date: 20110219
  Serious: Yes (Other)
  Sender: FDA-Public Use
  Company Number: A0881298A

PATIENT
  Age: 87 Year
  Sex: Female

DRUGS (13)
  1. AVANDIA [Suspect]
     Indication: TYPE 2 DIABETES MELLITUS
     Dosage: 4MG PER DAY
     Route: 048
     Dates: end: 20100902
  2. GLYBURIDE [Concomitant]
  3. NIFEDIPINE [Concomitant]
  4. ZETIA [Concomitant]
  5. GABAPENTIN [Concomitant]
  6. RESTORIL [Concomitant]
  7. VALTREX [Concomitant]
  8. SYNTHROID [Concomitant]
  9. ASPIRIN [Concomitant]
  10. CALCIUM [Concomitant]
  11. CRANBERRY [Concomitant]
  12. GLUCOSAMINE [Concomitant]
  13. MIRALAX [Concomitant]

REACTIONS (11)
  - ANGINA PECTORIS [None]
  - BLOOD CHOLESTEROL INCREASED [None]
  - BLOOD GLUCOSE INCREASED [None]
  - BLOOD PRESSURE INCREASED [None]
  - CONSTIPATION [None]
  - NAUSEA [None]
  - OEDEMA [None]
  - POLLAKIURIA [None]
  - THIRST [None]
  - VISION BLURRED [None]
  - WEIGHT INCREASED [None]
